FAERS Safety Report 15081284 (Version 1)
Quarter: 2018Q2

REPORT INFORMATION
  Report Type: Spontaneous
  Country: CA (occurrence: CA)
  Receive Date: 20180628
  Receipt Date: 20180628
  Transmission Date: 20180711
  Serious: Yes (Hospitalization, Other)
  Sender: FDA-Public Use
  Company Number: CA-BION-007272

PATIENT
  Age: 56 Year
  Sex: Female

DRUGS (15)
  1. PREDNISONE. [Concomitant]
     Active Substance: PREDNISONE
     Dosage: 10 MG ONCE DAILY
  2. OXYCODONE/OXYCODONE HYDROCHLORIDE/OXYCODONE PECTINATE/OXYCODONE TEREPHTHALATE [Concomitant]
     Dosage: 10 MG EVERY 6 HOURS IF NEEDED
  3. PARACETAMOL [Concomitant]
     Active Substance: ACETAMINOPHEN
     Dosage: 500 TO 1000 MG EVERY 6 HOURS IF NEEDED
  4. ESOMEPRAZOLE [Concomitant]
     Active Substance: ESOMEPRAZOLE
     Dosage: 40 MG ONCE DAILY
  5. MAGNESIUM GLUCEPTATE [Concomitant]
     Active Substance: MAGNESIUM GLUCEPTATE
     Dosage: 3000 MG 3 TIMES DAILY
  6. VALPROIC ACID. [Suspect]
     Active Substance: VALPROIC ACID
     Indication: BIPOLAR DISORDER
     Dosage: 500 MG TWICE DAILY
  7. ADALIMUMAB [Concomitant]
     Active Substance: ADALIMUMAB
     Dosage: 40 MG EVERY OTHER WEEK
  8. HALOPERIDOL. [Concomitant]
     Active Substance: HALOPERIDOL
     Dosage: 4 MG ONCE DAILY
  9. FORMOTEROL [Concomitant]
     Active Substance: FORMOTEROL
     Dosage: 12 UG TWICE DAILY
  10. DIETHYLSTILBESTROL [Concomitant]
     Active Substance: DIETHYLSTILBESTROL
     Dosage: 50 UG/D
  11. LEVOTHYROXINE. [Concomitant]
     Active Substance: LEVOTHYROXINE
     Dosage: 0.112 MG ONCE DAILY
  12. LOXAPINE. [Concomitant]
     Active Substance: LOXAPINE
     Dosage: 10 MG ONCE DAILY
  13. PROCYCLIDINE [Concomitant]
     Active Substance: PROCYCLIDINE
     Dosage: 2.5 MG TWICE DAILY
  14. PROGESTERONE. [Concomitant]
     Active Substance: PROGESTERONE
     Dosage: 2.5 MG ONCE DAILY
  15. SACCHARATED IRON OXIDE [Concomitant]
     Active Substance: IRON SUCROSE
     Dosage: 100 MG ONCE A MONTH
     Route: 030

REACTIONS (2)
  - Carnitine deficiency [Recovered/Resolved]
  - Hyperlactacidaemia [Recovered/Resolved]
